FAERS Safety Report 7357992-0 (Version None)
Quarter: 2011Q1

REPORT INFORMATION
  Report Type: 
  Country: None (occurrence: None)
  Receive Date: 20110317
  Receipt Date: 20110311
  Transmission Date: 20110831
  Serious: Yes (Death, Hospitalization)
  Sender: FDA-Public Use
  Company Number: JP-ELI_LILLY_AND_COMPANY-JP201005007840

PATIENT
  Age: 59 Year
  Sex: Female
  Weight: 48.5 kg

DRUGS (35)
  1. CIBENOL [Concomitant]
     Indication: HYPERTROPHIC CARDIOMYOPATHY
     Dosage: 100 MG, DAILY (1/D)
     Route: 048
     Dates: start: 20090801
  2. WARFARIN [Concomitant]
     Indication: PULMONARY ARTERIAL HYPERTENSION
     Dosage: 2 MG, DAILY (1/D)
     Route: 048
     Dates: start: 20091225, end: 20100204
  3. VENOGLOBULIN [Concomitant]
     Indication: PNEUMONIA
     Dosage: 5 G, DAILY (1/D)
     Route: 042
     Dates: start: 20100205, end: 20100206
  4. FESIN [Concomitant]
     Indication: ANAEMIA
     Dosage: 80 MG, DAILY (1/D)
     Route: 042
     Dates: start: 20100206, end: 20100208
  5. ALBUMIN (HUMAN) [Concomitant]
     Dosage: 50 ML, DAILY (1/D)
     Route: 042
     Dates: start: 20100215, end: 20100216
  6. ROCEPHIN [Concomitant]
     Dosage: 1 G, DAILY (1/D)
     Route: 042
     Dates: start: 20100107, end: 20100111
  7. TADALAFIL [Suspect]
     Dosage: 20 MG, DAILY (1/D)
     Route: 048
     Dates: start: 20100105
  8. ALFAROL [Concomitant]
     Dosage: 1 UG, DAILY (1/D)
     Route: 048
     Dates: end: 20100204
  9. DORNER [Concomitant]
     Indication: SKIN ULCER
     Dosage: 120 MG, DAILY (1/D)
     Route: 048
  10. HERBESSER R [Concomitant]
     Dosage: 100 MG, DAILY (1/D)
     Route: 048
     Dates: start: 20100208, end: 20100214
  11. OMEPRAL [Concomitant]
     Dosage: 40 MG, DAILY (1/D)
     Route: 042
     Dates: start: 20100205, end: 20100208
  12. ANTHROBIN P [Concomitant]
     Indication: HYPOALBUMINAEMIA
     Dosage: 1000 IU, DAILY (1/D)
     Route: 042
     Dates: start: 20100206, end: 20100208
  13. MEROPEN [Concomitant]
     Indication: PNEUMONIA
     Dosage: 1 G, DAILY (1/D)
     Route: 042
     Dates: start: 20100205, end: 20100216
  14. SALOBEL [Concomitant]
     Dosage: 100 MG, DAILY (1/D)
     Route: 048
     Dates: start: 20100222
  15. WARFARIN [Concomitant]
     Dosage: 2.25 MG, DAILY (1/D)
     Route: 048
     Dates: start: 20100218
  16. PARIET /JPN/ [Concomitant]
     Dosage: 10 MG, DAILY (1/D)
     Route: 048
     Dates: start: 20090801, end: 20100204
  17. HEPARIN SODIUM UNK MANU [Concomitant]
     Dosage: 5000 IU, DAILY (1/D)
     Route: 042
     Dates: start: 20100206, end: 20100222
  18. ROCEPHIN [Concomitant]
     Indication: PNEUMONIA
     Dosage: 2 G, DAILY (1/D)
     Route: 042
     Dates: start: 20100105, end: 20100106
  19. HERBESSER R [Concomitant]
     Dosage: 200 MG, DAILY (1/D)
     Route: 048
     Dates: start: 20100120, end: 20100206
  20. HERBESSER R [Concomitant]
     Dosage: 200 MG, DAILY (1/D)
     Route: 048
     Dates: start: 20100215
  21. SALOBEL [Concomitant]
     Indication: HYPERURICAEMIA
     Dosage: 100 MG, DAILY (1/D)
     Route: 048
     Dates: end: 20100204
  22. FERROUS CITRATE [Concomitant]
     Dosage: 50 MG, DAILY (1/D)
     Route: 048
     Dates: start: 20100209
  23. VENOGLOBULIN [Concomitant]
     Dosage: 2.5 G, DAILY (1/D)
     Route: 042
     Dates: start: 20100207, end: 20100207
  24. HEPARIN SODIUM UNK MANU [Concomitant]
     Dosage: 5000 IU, DAILY (1/D)
     Route: 042
     Dates: start: 20100204, end: 20100204
  25. ALBUMIN (HUMAN) [Concomitant]
     Indication: HYPOALBUMINAEMIA
     Dosage: 50 ML, DAILY (1/D)
     Route: 042
     Dates: start: 20100205, end: 20100207
  26. PARIET /JPN/ [Concomitant]
     Dosage: 10 MG, DAILY (1/D)
     Route: 048
     Dates: start: 20100209
  27. TRACLEER [Concomitant]
     Indication: PULMONARY ARTERIAL HYPERTENSION
     Dosage: 62.5 MG, 2/D
     Route: 048
     Dates: start: 20091218
  28. PREDONINE [Concomitant]
     Indication: MIXED CONNECTIVE TISSUE DISEASE
     Dosage: 10 MG, DAILY (1/D)
     Route: 048
  29. JUVELA [Concomitant]
     Indication: SKIN ULCER
     Dosage: 600 MG, DAILY (1/D)
     Route: 048
  30. BONALON [Concomitant]
     Dosage: 35 MG, DAILY (1/D)
     Route: 048
  31. HERBESSER R [Concomitant]
     Indication: HYPERTROPHIC CARDIOMYOPATHY
     Dosage: 100 MG, DAILY (1/D)
     Route: 048
     Dates: start: 20091228, end: 20100119
  32. DIOVAN [Concomitant]
     Indication: HYPERTENSION
     Dosage: 20 MG, DAILY (1/D)
     Route: 048
     Dates: start: 20100122, end: 20100206
  33. HEPARIN SODIUM UNK MANU [Concomitant]
     Dosage: 10000 IU, DAILY (1/D)
     Route: 042
     Dates: start: 20100205, end: 20100205
  34. TADALAFIL [Suspect]
     Indication: PULMONARY ARTERIAL HYPERTENSION
     Dosage: 20 MG, DAILY (1/D)
     Route: 048
     Dates: start: 20091228, end: 20100104
  35. FERROUS CITRATE [Concomitant]
     Indication: ANAEMIA
     Dosage: 100 MG, DAILY (1/D)
     Route: 048
     Dates: start: 20091211, end: 20100204

REACTIONS (2)
  - CARDIAC FAILURE [None]
  - INFECTION [None]
